FAERS Safety Report 21963305 (Version 1)
Quarter: 2023Q1

REPORT INFORMATION
  Report Type: Spontaneous
  Country: AU (occurrence: AU)
  Receive Date: 20230207
  Receipt Date: 20230207
  Transmission Date: 20230417
  Serious: Yes (Other)
  Sender: FDA-Public Use
  Company Number: AU-NOVOPROD-1021419

PATIENT

DRUGS (2)
  1. OZEMPIC [Suspect]
     Active Substance: SEMAGLUTIDE
     Indication: Product used for unknown indication
     Dosage: 60 CLICKS (OUT OF 74)
  2. OZEMPIC [Suspect]
     Active Substance: SEMAGLUTIDE
     Dosage: INCREASES IN DOSE (UNSPECIFIED)

REACTIONS (6)
  - Suicidal ideation [Unknown]
  - Depression [Unknown]
  - Constipation [Unknown]
  - Diarrhoea [Unknown]
  - Nausea [Unknown]
  - Wrong technique in product usage process [Unknown]
